FAERS Safety Report 24169189 (Version 1)
Quarter: 2024Q3

REPORT INFORMATION
  Report Type: Spontaneous
  Country: US (occurrence: US)
  Receive Date: 20240802
  Receipt Date: 20240802
  Transmission Date: 20241017
  Serious: Yes (Other)
  Sender: SANOFI AVENTIS
  Company Number: US-SA-SAC20240802000048

PATIENT
  Age: 68 Year
  Sex: Male

DRUGS (17)
  1. DUPIXENT [Suspect]
     Active Substance: DUPILUMAB
     Indication: Dermatitis atopic
     Dosage: UNK
     Route: 058
  2. DUPIXENT [Suspect]
     Active Substance: DUPILUMAB
     Dosage: 300 MG, QOW
     Route: 058
  3. CLOBETASOL [Concomitant]
     Active Substance: CLOBETASOL
  4. CLOPIDOGREL [Concomitant]
     Active Substance: CLOPIDOGREL BISULFATE
  5. COLLAGEN [Concomitant]
     Active Substance: COLLAGEN
  6. ENTRESTO [Concomitant]
     Active Substance: SACUBITRIL\VALSARTAN
  7. EZETIMIBE [Concomitant]
     Active Substance: EZETIMIBE
  8. GABAPENTIN [Concomitant]
     Active Substance: GABAPENTIN
  9. PANTOPRAZOLE [Concomitant]
     Active Substance: PANTOPRAZOLE
  10. ROSUVASTATIN [Concomitant]
     Active Substance: ROSUVASTATIN\ROSUVASTATIN CALCIUM
  11. SPIRONOLACTONE [Concomitant]
     Active Substance: SPIRONOLACTONE
  12. ALLERGY RELIEF [LORATADINE] [Concomitant]
  13. VITAMINS [Concomitant]
     Active Substance: VITAMINS
  14. METOPROLOL [Concomitant]
     Active Substance: METOPROLOL
  15. FISH OIL [Concomitant]
     Active Substance: FISH OIL
  16. SUPER B COMPLEX [BIOTIN;CHOLINE;CYANOCOBALAMIN;FOLIC ACID;INOSITOL;NIC [Concomitant]
  17. VITAMIN C [Concomitant]
     Active Substance: ASCORBIC ACID

REACTIONS (1)
  - Cardiac failure [Recovered/Resolved]

NARRATIVE: CASE EVENT DATE: 20170101
